FAERS Safety Report 24673687 (Version 1)
Quarter: 2024Q4

REPORT INFORMATION
  Report Type: Report from Study
  Country: US (occurrence: US)
  Receive Date: 20241128
  Receipt Date: 20241128
  Transmission Date: 20250114
  Serious: Yes (Hospitalization, Other)
  Sender: UCB
  Company Number: US-UCBSA-2024037380

PATIENT
  Age: 10 Year
  Sex: Male
  Weight: 33.8 kg

DRUGS (5)
  1. FINTEPLA [Suspect]
     Active Substance: FENFLURAMINE
     Indication: Lennox-Gastaut syndrome
     Dosage: 2.9 MILLILITER, 2X/DAY (BID)
     Dates: start: 20231116
  2. FINTEPLA [Suspect]
     Active Substance: FENFLURAMINE
     Indication: Scoliosis
     Dosage: 12.76 MILLIGRAM/DAY
  3. FINTEPLA [Suspect]
     Active Substance: FENFLURAMINE
     Indication: Obstructive sleep apnoea syndrome
  4. FINTEPLA [Suspect]
     Active Substance: FENFLURAMINE
     Indication: Cerebral palsy
  5. FINTEPLA [Suspect]
     Active Substance: FENFLURAMINE
     Indication: Off label use

REACTIONS (2)
  - Spinal operation [Not Recovered/Not Resolved]
  - Tricuspid valve incompetence [Unknown]

NARRATIVE: CASE EVENT DATE: 20240722
